FAERS Safety Report 16627648 (Version 3)
Quarter: 2019Q3

REPORT INFORMATION
  Report Type: Report from Study
  Country: JP (occurrence: JP)
  Receive Date: 20190724
  Receipt Date: 20190826
  Transmission Date: 20191004
  Serious: Yes (Death)
  Sender: FDA-Public Use
  Company Number: JP-INCYTE CORPORATION-2018IN008671

PATIENT

DRUGS (4)
  1. STARASID [Concomitant]
     Active Substance: CYTARABINE OCFOSFATE
     Indication: POLYCYTHAEMIA VERA
     Dosage: 150 MG, UNK
     Route: 048
     Dates: start: 20170104, end: 20170128
  2. OXYGEN. [Concomitant]
     Active Substance: OXYGEN
     Indication: MULTIPLE ORGAN DYSFUNCTION SYNDROME
     Dosage: UNK
     Route: 065
  3. JAKAVI [Suspect]
     Active Substance: RUXOLITINIB
     Indication: POLYCYTHAEMIA VERA
     Dosage: 5 MG, BID
     Route: 048
     Dates: start: 20170126, end: 20170128
  4. HYDREA [Concomitant]
     Active Substance: HYDROXYUREA
     Indication: POLYCYTHAEMIA VERA
     Dosage: 1000 MG, UNK
     Route: 048

REACTIONS (3)
  - Malaise [Fatal]
  - Respiratory failure [Fatal]
  - Polycythaemia vera [Fatal]
